FAERS Safety Report 5217840-1 (Version None)
Quarter: 2007Q1

REPORT INFORMATION
  Report Type: 
  Country: None (occurrence: None)
  Receive Date: 20061130
  Receipt Date: 20060526
  Transmission Date: 20070707
  Serious: Yes (Other)
  Sender: FDA-Public Use
  Company Number: US200607004591

PATIENT
  Age: 39 Year
  Sex: Male
  Weight: 97.5 kg

DRUGS (1)
  1. ZYPREXA [Suspect]
     Indication: BIPOLAR DISORDER
     Dosage: 15 MG ORAL
     Route: 048
     Dates: start: 20020601, end: 20020901

REACTIONS (2)
  - DIABETES MELLITUS [None]
  - DIABETIC COMA [None]
